FAERS Safety Report 5100088-9 (Version None)
Quarter: 2006Q3

REPORT INFORMATION
  Report Type: 
  Country: None (occurrence: None)
  Receive Date: 20060731
  Receipt Date: 20060519
  Transmission Date: 20061208
  Serious: No
  Sender: FDA-Public Use
  Company Number: 2006PV014132

PATIENT
  Age: 71 Year
  Sex: Male
  Weight: 96.6162 kg

DRUGS (2)
  1. BYETTA [Suspect]
     Indication: DIABETES MELLITUS NON-INSULIN-DEPENDENT
     Dosage: 5 MCG;BID;SC
     Route: 058
     Dates: start: 20060501
  2. GLUCOTROL XL [Concomitant]

REACTIONS (2)
  - COUGH [None]
  - DYSURIA [None]
